FAERS Safety Report 10263578 (Version 1)
Quarter: 2014Q2

REPORT INFORMATION
  Report Type: Spontaneous
  Country: US (occurrence: US)
  Receive Date: 20140626
  Receipt Date: 20140626
  Transmission Date: 20141212
  Serious: No
  Sender: FDA-Public Use
  Company Number: US-GILEAD-2014-0106716

PATIENT
  Age: 70 Year
  Sex: Female

DRUGS (14)
  1. LETAIRIS [Suspect]
     Indication: PULMONARY HYPERTENSION
     Dosage: 5 MG, QD
     Route: 065
     Dates: start: 20130604
  2. AMOXICILLIN [Concomitant]
  3. VICODIN [Concomitant]
  4. ADVAIR [Concomitant]
  5. SPIRIVA [Concomitant]
  6. GABAPENTIN [Concomitant]
  7. NEXIUM                             /01479302/ [Concomitant]
  8. ROPINIROLE [Concomitant]
  9. PRAVASTATIN [Concomitant]
  10. METOCLOPRAMIDE [Concomitant]
  11. LISINOPRIL [Concomitant]
  12. OXYBUTIN [Concomitant]
  13. FUROSEMIDE [Concomitant]
  14. LEVOTHYROXINE [Concomitant]

REACTIONS (1)
  - Nasal congestion [Not Recovered/Not Resolved]
